FAERS Safety Report 7815465-2 (Version None)
Quarter: 2011Q4

REPORT INFORMATION
  Report Type: 
  Country: None (occurrence: None)
  Receive Date: 20111014
  Receipt Date: 20111004
  Transmission Date: 20120403
  Serious: Yes (Hospitalization, Other)
  Sender: FDA-Public Use
  Company Number: PHHY2011US11182

PATIENT
  Sex: Female
  Weight: 61.224 kg

DRUGS (23)
  1. ZOFRAN [Concomitant]
     Indication: NAUSEA
     Dosage: 4 MG, PRN
     Route: 048
  2. FAMVIR [Concomitant]
     Dosage: 250 MG, BID
  3. DIFLUCAN [Concomitant]
     Dosage: 400 MG, DAILY
     Route: 048
  4. PREDNISONE [Concomitant]
     Dosage: 30 MG, DAILY
  5. KLOR-CON [Concomitant]
     Dosage: 1 DF, DAILY
  6. EXJADE [Suspect]
     Dosage: 1500 MG, DAILY
     Route: 048
     Dates: start: 20101012
  7. VITAMIN K TAB [Concomitant]
     Route: 042
  8. ACETAMINOPHEN [Concomitant]
     Dosage: 2 DF, PRN
  9. LEVAQUIN [Concomitant]
     Dosage: 750 MG, DAILY
     Route: 048
  10. DECITABINE [Concomitant]
     Indication: MYELODYSPLASTIC SYNDROME
     Dosage: 35 MG/M2, DAILY
     Route: 042
     Dates: start: 20101230, end: 20110105
  11. FLEXERIL [Concomitant]
     Indication: MUSCLE SPASMS
     Dosage: 5 MG, TID
  12. NEULASTA [Concomitant]
  13. LASIX [Concomitant]
     Dosage: 20 MG, DAILY
  14. OMEPRAZOLE [Concomitant]
     Dosage: 40 MG, DAILY
  15. ACYCLOVIR [Concomitant]
     Dosage: 400 MG, BID
  16. FOLIC ACID [Concomitant]
     Indication: FOLATE DEFICIENCY
     Dosage: 1 MG, DAILY
     Route: 048
  17. NEUPOGEN [Concomitant]
     Dosage: 480 UG, DAILY
     Route: 058
  18. FLUCONAZOLE [Concomitant]
     Dosage: 400 MG, BID
  19. METFORMIN HYDROCHLORIDE [Concomitant]
     Indication: DIABETES MELLITUS
     Dosage: 500 MG, DAILY
     Route: 048
  20. ASPIRIN [Concomitant]
     Indication: DEEP VEIN THROMBOSIS
     Dosage: 81 MG, DAILY
     Route: 048
  21. HYDROCODONE BITARTRATE [Concomitant]
     Dosage: 2 DF, PRN
  22. EXJADE [Suspect]
     Indication: HAEMOCHROMATOSIS
     Dosage: 1000 MG, DAILY
     Route: 048
     Dates: start: 20101001
  23. PREDNISONE [Concomitant]
     Dosage: 40 MG, DAILY

REACTIONS (33)
  - DYSPNOEA [None]
  - ABSCESS [None]
  - THROMBOCYTOPENIA [None]
  - ANAEMIA HAEMOLYTIC AUTOIMMUNE [None]
  - HAEMOGLOBIN DECREASED [None]
  - BLOOD POTASSIUM DECREASED [None]
  - BLOOD SODIUM DECREASED [None]
  - PANCYTOPENIA [None]
  - NEUTROPENIA [None]
  - HAEMATOCRIT DECREASED [None]
  - ABDOMINAL PAIN [None]
  - FUNGAL INFECTION [None]
  - PNEUMONIA [None]
  - MUSCULOSKELETAL CHEST PAIN [None]
  - CELLULITIS [None]
  - MALAISE [None]
  - BLOOD CHLORIDE DECREASED [None]
  - PROTHROMBIN TIME PROLONGED [None]
  - NAUSEA [None]
  - WHITE BLOOD CELL COUNT DECREASED [None]
  - FURUNCLE [None]
  - BLOOD CALCIUM DECREASED [None]
  - PYREXIA [None]
  - SEPTIC SHOCK [None]
  - ECCHYMOSIS [None]
  - OEDEMA [None]
  - ESCHERICHIA BACTERAEMIA [None]
  - HYPERTENSION [None]
  - RESPIRATORY TRACT INFECTION [None]
  - NEUTROPHIL COUNT DECREASED [None]
  - BREAST MASS [None]
  - ACTIVATED PARTIAL THROMBOPLASTIN TIME PROLONGED [None]
  - VOMITING [None]
